FAERS Safety Report 10403688 (Version 1)
Quarter: 2014Q3

REPORT INFORMATION
  Report Type: Spontaneous
  Country: US (occurrence: US)
  Receive Date: 20140822
  Receipt Date: 20140822
  Transmission Date: 20150326
  Serious: No
  Sender: FDA-Public Use
  Company Number: US-ASTRAZENECA-2014SE04199

PATIENT
  Age: 60 Year
  Sex: Female

DRUGS (1)
  1. SYMBICORT [Suspect]
     Active Substance: BUDESONIDE\FORMOTEROL FUMARATE DIHYDRATE
     Indication: MALAISE
     Dosage: 80 MCG/4.5 MCG 2 PUFFS, TWO TIMES A DAY
     Route: 055
     Dates: start: 201401

REACTIONS (4)
  - Bronchitis [Unknown]
  - Adverse event [Unknown]
  - Off label use [Unknown]
  - Dysphonia [Unknown]
